FAERS Safety Report 7449078-1 (Version None)
Quarter: 2011Q2

REPORT INFORMATION
  Report Type: 
  Country: None (occurrence: None)
  Receive Date: 20110502
  Receipt Date: 20091122
  Transmission Date: 20111010
  Serious: Yes (Other)
  Sender: FDA-Public Use
  Company Number: US-BAYER-200940096NA

PATIENT
  Age: 54 Year
  Sex: Male
  Weight: 90.703 kg

DRUGS (8)
  1. COUMADIN [Concomitant]
  2. CARDIZEM [Concomitant]
  3. BETAPACE [Concomitant]
  4. TRASYLOL [Suspect]
     Indication: MITRAL VALVE REPLACEMENT
     Route: 042
     Dates: start: 20000201
  5. TRASYLOL [Suspect]
     Indication: CORONARY ARTERY BYPASS
  6. LANOXIN [Concomitant]
  7. CAPTOPRIL [Concomitant]
  8. PRILOSEC [Concomitant]

REACTIONS (12)
  - RENAL IMPAIRMENT [None]
  - RENAL INJURY [None]
  - EMOTIONAL DISTRESS [None]
  - PAIN [None]
  - CEREBROVASCULAR ACCIDENT [None]
  - STRESS [None]
  - ANXIETY [None]
  - INJURY [None]
  - UNEVALUABLE EVENT [None]
  - ANHEDONIA [None]
  - RENAL FAILURE [None]
  - FEAR [None]
